FAERS Safety Report 7356090-X (Version None)
Quarter: 2011Q1

REPORT INFORMATION
  Report Type: 
  Country: None (occurrence: None)
  Receive Date: 20110316
  Receipt Date: 20100930
  Transmission Date: 20110831
  Serious: Yes (Hospitalization)
  Sender: FDA-Public Use
  Company Number: US-BAYER-200938983NA

PATIENT
  Sex: Female
  Weight: 96.818 kg

DRUGS (9)
  1. UNCODEABLE ^UNCLASSIFIABLE^ [Concomitant]
  2. MERIDIA [Concomitant]
  3. PHENTERMINE [Concomitant]
  4. IMITREX [Concomitant]
  5. PERCOCET [Concomitant]
  6. OTHER ANALGESICS AND ANTIPYRETICS [Concomitant]
  7. YAZ [Suspect]
     Route: 048
     Dates: start: 20071101, end: 20080120
  8. AMBIEN [Concomitant]
  9. XENICAL [Concomitant]

REACTIONS (2)
  - DEEP VEIN THROMBOSIS [None]
  - THROMBOSIS [None]
